FAERS Safety Report 8769815 (Version 2)
Quarter: 2013Q4

REPORT INFORMATION
  Report Type: Spontaneous
  Country: GB (occurrence: GB)
  Receive Date: 20120905
  Receipt Date: 20131031
  Transmission Date: 20140711
  Serious: Yes (Other)
  Sender: FDA-Public Use
  Company Number: GB-MERCK-1209GBR000247

PATIENT
  Age: 57 Year
  Sex: Male

DRUGS (1)
  1. EZETROL [Suspect]
     Route: 048

REACTIONS (1)
  - Gastric banding [Unknown]
